FAERS Safety Report 8416711-7 (Version None)
Quarter: 2012Q2

REPORT INFORMATION
  Report Type: 
  Country: None (occurrence: None)
  Receive Date: 20120606
  Receipt Date: 20120601
  Transmission Date: 20120825
  Serious: Yes (Hospitalization, Disabling)
  Sender: FDA-Public Use
  Company Number: PHHO2011CA019601

PATIENT
  Sex: Male
  Weight: 61.8 kg

DRUGS (12)
  1. ANGIOTENSIN II ANTAGONISTS [Concomitant]
  2. BLINDED ALISKIREN [Suspect]
     Indication: CARDIOVASCULAR DISORDER
     Dosage: ACTIVE RUN IN PHASE
  3. BLINDED NO TREATMENT RECEIVED [Suspect]
     Indication: CARDIOVASCULAR DISORDER
     Dosage: ACTIVE RUN IN PHASE
  4. PLACEBO [Suspect]
     Indication: CARDIOVASCULAR DISORDER
     Dosage: ACTIVE RUN IN PHASE
  5. ASPIRIN [Concomitant]
  6. ATORVASTATIN CALCIUM [Concomitant]
  7. ESIDRIX [Suspect]
     Indication: CARDIOVASCULAR DISORDER
     Dosage: ACTIVE RUN IN PHASE
  8. HYDROCHLOROTHIAZIDE [Suspect]
     Dosage: 25 MG, UNK
     Dates: end: 20111109
  9. ALISKIREN [Suspect]
     Indication: CARDIOVASCULAR DISORDER
     Dosage: 150 MG, UNK
     Dates: start: 20111001, end: 20111109
  10. AMLODIPINE [Suspect]
     Indication: CARDIOVASCULAR DISORDER
     Dosage: 5 MG, UNK
     Dates: start: 20111001, end: 20111008
  11. AMLODIPINE [Suspect]
     Indication: CARDIOVASCULAR DISORDER
     Dosage: ACTIVE RUN IN PHASE
  12. VALSARTAN [Suspect]
     Dosage: 160 MG, QD

REACTIONS (2)
  - CEREBRAL HYPOPERFUSION [None]
  - HYPOTENSION [None]
